FAERS Safety Report 10741472 (Version 1)
Quarter: 2015Q1

REPORT INFORMATION
  Report Type: Spontaneous
  Country: US (occurrence: None)
  Receive Date: 20150123
  Receipt Date: 20150123
  Transmission Date: 20150721
  Serious: No
  Sender: FDA-Public Use
  Company Number: None

PATIENT

DRUGS (2)
  1. WELLBUTRIN XL [Suspect]
     Active Substance: BUPROPION HYDROCHLORIDE
     Dosage: 150MG SR  BID  ORAL
     Route: 048
     Dates: start: 20150107, end: 20150112
  2. BUPROPION SR [Suspect]
     Active Substance: BUPROPION
     Route: 048

REACTIONS (2)
  - Product quality issue [None]
  - Product label confusion [None]

NARRATIVE: CASE EVENT DATE: 20150107
